FAERS Safety Report 20750335 (Version 1)
Quarter: 2022Q2

REPORT INFORMATION
  Report Type: Spontaneous
  Country: US (occurrence: None)
  Receive Date: 20220426
  Receipt Date: 20220426
  Transmission Date: 20220721
  Serious: Yes (Other)
  Sender: FDA-Public Use
  Company Number: None

PATIENT
  Age: 36 Year
  Sex: Male
  Weight: 102.06 kg

DRUGS (1)
  1. BUPRENORPHINE\NALOXONE [Suspect]
     Active Substance: BUPRENORPHINE\NALOXONE
     Indication: Drug dependence
     Dosage: OTHER QUANTITY : 8-2 MG;?FREQUENCY : TWICE A DAY;?
     Route: 060
     Dates: start: 20191212

REACTIONS (2)
  - Nausea [None]
  - Product solubility abnormal [None]

NARRATIVE: CASE EVENT DATE: 20220419
